FAERS Safety Report 21278344 (Version 1)
Quarter: 2022Q3

REPORT INFORMATION
  Report Type: Spontaneous
  Country: None (occurrence: UY)
  Receive Date: 20220831
  Receipt Date: 20220831
  Transmission Date: 20221027
  Serious: Yes (Death, Life-Threatening, Hospitalization)
  Sender: FDA-Public Use
  Company Number: UY-Nostrum Laboratories, Inc.-2132436

PATIENT
  Age: 69 Year
  Sex: Female

DRUGS (1)
  1. VALPROIC ACID [Suspect]
     Active Substance: VALPROIC ACID
     Indication: Seizure prophylaxis
     Route: 048

REACTIONS (4)
  - Hyperammonaemic encephalopathy [Fatal]
  - Coma [Recovered/Resolved]
  - Wean from ventilator [Fatal]
  - Tracheo-oesophageal fistula [Fatal]
